FAERS Safety Report 17433470 (Version 3)
Quarter: 2020Q4

REPORT INFORMATION
  Report Type: Report from Study
  Country: US (occurrence: US)
  Receive Date: 20200219
  Receipt Date: 20201029
  Transmission Date: 20210113
  Serious: Yes (Hospitalization, Other)
  Sender: FDA-Public Use
  Company Number: US-TAKEDA-2020TUS009780

PATIENT
  Age: 61 Year
  Sex: Female
  Weight: 48.98 kg

DRUGS (14)
  1. VEDOLIZUMAB [Suspect]
     Active Substance: VEDOLIZUMAB
     Dosage: 300 MILLIGRAM, Q4WEEKS
     Route: 042
  2. ZESTRIL [Concomitant]
     Active Substance: LISINOPRIL
     Indication: BLOOD PRESSURE ABNORMAL
     Dosage: UNK
  3. ADDERALL [Concomitant]
     Active Substance: AMPHETAMINE ASPARTATE\AMPHETAMINE SULFATE\DEXTROAMPHETAMINE SACCHARATE\DEXTROAMPHETAMINE SULFATE
     Dosage: UNK
  4. METOPROLOL. [Concomitant]
     Active Substance: METOPROLOL
     Indication: BLOOD PRESSURE ABNORMAL
     Dosage: UNK
  5. PREDNISONE. [Concomitant]
     Active Substance: PREDNISONE
     Dosage: UNK
  6. SEROQUEL [Concomitant]
     Active Substance: QUETIAPINE FUMARATE
     Indication: SLEEP DISORDER
     Dosage: UNK
  7. MAGNESIUM [Concomitant]
     Active Substance: MAGNESIUM
     Dosage: UNK
  8. AMITRIPTYLINE [Concomitant]
     Active Substance: AMITRIPTYLINE
     Indication: SLEEP DISORDER
     Dosage: UNK
  9. POTASSIUM [Concomitant]
     Active Substance: POTASSIUM
     Dosage: UNK
  10. REGLAN [Concomitant]
     Active Substance: METOCLOPRAMIDE HYDROCHLORIDE
     Indication: NAUSEA
     Dosage: UNK
  11. FENOFIBRATE. [Concomitant]
     Active Substance: FENOFIBRATE
     Indication: BLOOD CHOLESTEROL
     Dosage: UNK
  12. ZOLOFT [Concomitant]
     Active Substance: SERTRALINE HYDROCHLORIDE
     Indication: NAUSEA
     Dosage: UNK
  13. VEDOLIZUMAB [Suspect]
     Active Substance: VEDOLIZUMAB
     Indication: CROHN^S DISEASE
     Dosage: UNK
     Route: 065
     Dates: start: 201905
  14. VITAMIN B3 [Concomitant]
     Active Substance: NIACIN
     Dosage: UNK

REACTIONS (18)
  - Blood potassium decreased [Unknown]
  - Weight decreased [Unknown]
  - Anxiety [Unknown]
  - Cholelithiasis [Recovered/Resolved]
  - Abdominal pain [Unknown]
  - Diarrhoea [Unknown]
  - Fatigue [Unknown]
  - Influenza [Unknown]
  - Frustration tolerance decreased [Unknown]
  - Abdominal hernia [Recovered/Resolved]
  - Helplessness [Unknown]
  - Off label use [Unknown]
  - Illness [Unknown]
  - Urinary tract infection [Unknown]
  - Blood magnesium decreased [Not Recovered/Not Resolved]
  - Vomiting [Unknown]
  - Visual impairment [Unknown]
  - Nausea [Unknown]

NARRATIVE: CASE EVENT DATE: 201910
